FAERS Safety Report 23073736 (Version 1)
Quarter: 2023Q4

REPORT INFORMATION
  Report Type: Spontaneous
  Country: GB (occurrence: GB)
  Receive Date: 20231017
  Receipt Date: 20231017
  Transmission Date: 20240110
  Serious: Yes (Other)
  Sender: FDA-Public Use
  Company Number: GB-MYLANLABS-2023M1108385

PATIENT
  Age: 68 Year
  Sex: Male

DRUGS (11)
  1. VALACYCLOVIR HYDROCHLORIDE [Suspect]
     Active Substance: VALACYCLOVIR HYDROCHLORIDE
     Indication: Retinitis viral
     Dosage: 1 GRAM, BID
     Route: 048
  2. VALACYCLOVIR HYDROCHLORIDE [Suspect]
     Active Substance: VALACYCLOVIR HYDROCHLORIDE
     Dosage: 2 GRAM, TID
     Route: 048
  3. VALACYCLOVIR HYDROCHLORIDE [Suspect]
     Active Substance: VALACYCLOVIR HYDROCHLORIDE
     Dosage: 1 GRAM, TID
     Route: 048
  4. VALACYCLOVIR HYDROCHLORIDE [Suspect]
     Active Substance: VALACYCLOVIR HYDROCHLORIDE
     Dosage: 500 MILLIGRAM, TID (THREE TIMES PER DAY FOR A PERIOD)
     Route: 048
  5. VALACYCLOVIR HYDROCHLORIDE [Suspect]
     Active Substance: VALACYCLOVIR HYDROCHLORIDE
     Dosage: 2 GRAM, TID (VALACICLOVIR 2 G THREE TIMES PER DAY)
     Route: 048
  6. VALACYCLOVIR HYDROCHLORIDE [Suspect]
     Active Substance: VALACYCLOVIR HYDROCHLORIDE
     Dosage: 1 GRAM, TID (REDUCED TO 1 G THREE TIMES PER DAY)
     Route: 048
  7. GANCICLOVIR [Concomitant]
     Active Substance: GANCICLOVIR
     Indication: Retinitis viral
     Dosage: RECEIVED ONE 2 MG/0.1 ML
  8. GANCICLOVIR [Concomitant]
     Active Substance: GANCICLOVIR
     Dosage: SECOND INJECTION OF 4 MG/0.1 ML WAS ADMINISTERED ONE WEEK LATER
  9. GANCICLOVIR [Concomitant]
     Active Substance: GANCICLOVIR
     Dosage: RECEIVED TWO DOSES OF 4MG/0.1ML
  10. GANCICLOVIR [Concomitant]
     Active Substance: GANCICLOVIR
     Dosage: A FURTHER INTRAVITREAL INJECTION OF 4MG/0.1ML WAS ADMINISTERED 6 WEEKS AFTER THE LAST
  11. FOSCARNET [Concomitant]
     Active Substance: FOSCARNET
     Indication: Retinitis viral
     Dosage: UNK UNK, QW (2.4 MG/0.1 ML AND RECEIVED A TOTAL OF 4 INJECTIONS)
     Route: 065

REACTIONS (3)
  - Herpes ophthalmic [Unknown]
  - Condition aggravated [Unknown]
  - Disease recurrence [Unknown]
